FAERS Safety Report 6783375-8 (Version None)
Quarter: 2010Q2

REPORT INFORMATION
  Report Type: 
  Country: None (occurrence: None)
  Receive Date: 20100617
  Receipt Date: 20100604
  Transmission Date: 20101027
  Serious: Yes (Death, Other)
  Sender: FDA-Public Use
  Company Number: 010580

PATIENT
  Sex: Male
  Weight: 52.3 kg

DRUGS (13)
  1. CERTOLIZUMAB PEGOL (CERTOLIZUMAB PEGOL) [Suspect]
     Indication: CROHN'S DISEASE
     Dosage: (400 MG 1X/MONTH SUBCUTANEOUS)
     Route: 058
     Dates: start: 20060101, end: 20060101
  2. INFLIXIMAB (INFLIXIMAB) [Suspect]
     Indication: CROHN'S DISEASE
     Dosage: (400 MG 1X/2 MONTH INTRAVENOUS (NOT OTHERWISE SPECIFIED)
     Route: 042
     Dates: start: 20040101, end: 20040101
  3. ADALIMUMAB (ADALIMUMAB) [Suspect]
     Indication: CROHN'S DISEASE
     Dosage: (SUBCUTANEOUS)
     Dates: start: 20080101, end: 20080501
  4. AZATHIOPRIN [Concomitant]
  5. PANTOPRAZOLE [Concomitant]
  6. TORASEMIDE [Concomitant]
  7. MOVICOL /01749801/ [Concomitant]
  8. MCP 00041901/ [Concomitant]
  9. ESPUMISAN /001595501/ [Concomitant]
  10. AMITRIPTYLINE [Concomitant]
  11. FENTANYL [Concomitant]
  12. ENOXAPARIN [Concomitant]
  13. MORPHINE [Concomitant]

REACTIONS (33)
  - ANXIETY [None]
  - ASCITES [None]
  - CACHEXIA [None]
  - CHOLELITHIASIS [None]
  - COLON ADENOMA [None]
  - CULTURE URINE POSITIVE [None]
  - DECREASED APPETITE [None]
  - DEPRESSION [None]
  - DYSPNOEA [None]
  - ESCHERICHIA TEST POSITIVE [None]
  - FATIGUE [None]
  - FISTULA [None]
  - GENERAL PHYSICAL HEALTH DETERIORATION [None]
  - GENERALISED OEDEMA [None]
  - HAEMORRHAGE [None]
  - HEPATOMEGALY [None]
  - HYDRONEPHROSIS [None]
  - HYPERCALCAEMIA [None]
  - KIDNEY RUPTURE [None]
  - MALIGNANT NEOPLASM PROGRESSION [None]
  - MENTAL RETARDATION [None]
  - METASTASES TO LIVER [None]
  - MULTI-ORGAN FAILURE [None]
  - NAUSEA [None]
  - NEOPLASM MALIGNANT [None]
  - PORTAL VEIN THROMBOSIS [None]
  - PSORIASIS [None]
  - RENAL FAILURE ACUTE [None]
  - RHINITIS ALLERGIC [None]
  - SLEEP DISORDER [None]
  - SPLENOMEGALY [None]
  - URINARY TRACT DISORDER [None]
  - VOMITING [None]
